FAERS Safety Report 6270778-3 (Version None)
Quarter: 2009Q3

REPORT INFORMATION
  Report Type: 
  Country: None (occurrence: None)
  Receive Date: 20090714
  Receipt Date: 20090707
  Transmission Date: 20100115
  Serious: Yes (Death, Hospitalization)
  Sender: FDA-Public Use
  Company Number: 2009SP011149

PATIENT
  Age: 77 Year
  Sex: Male

DRUGS (1)
  1. TEMODAL [Suspect]
     Indication: GLIOBLASTOMA
     Dosage: 100 MG/M2;
     Dates: start: 20070508, end: 20090513

REACTIONS (6)
  - AORTIC ARTERIOSCLEROSIS [None]
  - AORTIC STENOSIS [None]
  - GENERAL PHYSICAL HEALTH DETERIORATION [None]
  - HERNIA [None]
  - PNEUMOCYSTIS JIROVECI PNEUMONIA [None]
  - RESPIRATORY FAILURE [None]
